FAERS Safety Report 10842372 (Version 1)
Quarter: 2015Q1

REPORT INFORMATION
  Report Type: Spontaneous
  Country: US (occurrence: US)
  Receive Date: 20150220
  Receipt Date: 20150220
  Transmission Date: 20150721
  Serious: No
  Sender: FDA-Public Use
  Company Number: US-PFIZER INC-2015063391

PATIENT
  Age: 87 Year
  Sex: Female
  Weight: 65 kg

DRUGS (5)
  1. CALCIUM [Concomitant]
     Active Substance: CALCIUM
     Dosage: UNK
  2. HYDROCHLOROTHIAZIDE. [Suspect]
     Active Substance: HYDROCHLOROTHIAZIDE
     Indication: DIURETIC THERAPY
     Dosage: 25 MG, 1X/DAY
  3. IBUPROFEN. [Concomitant]
     Active Substance: IBUPROFEN
     Indication: BACK PAIN
     Dosage: 400 MG, EVERY 4 HOURS AS NEEDED
  4. PREMARIN [Suspect]
     Active Substance: ESTROGENS, CONJUGATED
     Indication: VAGINAL ODOUR
     Dosage: ONE APPLICATOR FULL, ALTERNATE DAY
     Route: 067
     Dates: start: 2014
  5. COZAAR [Concomitant]
     Active Substance: LOSARTAN POTASSIUM
     Indication: BLOOD PRESSURE ABNORMAL
     Dosage: 100 MG, 1X/DAY

REACTIONS (3)
  - Off label use [Unknown]
  - Vaginal haemorrhage [Unknown]
  - Dizziness [Unknown]

NARRATIVE: CASE EVENT DATE: 2014
